FAERS Safety Report 4913576-2 (Version None)
Quarter: 2006Q1

REPORT INFORMATION
  Report Type: 
  Country: None (occurrence: None)
  Receive Date: 20060216
  Receipt Date: 20060206
  Transmission Date: 20060701
  Serious: Yes (Other)
  Sender: FDA-Public Use
  Company Number: PHBS2006JP02182

PATIENT
  Age: 76 Year
  Sex: Female

DRUGS (13)
  1. VOLTAREN [Suspect]
     Indication: HEADACHE
     Dosage: 25 MG/DAY
     Route: 054
     Dates: start: 20051231
  2. NICHOLIN [Concomitant]
     Route: 042
     Dates: start: 20060102
  3. ATP [Concomitant]
     Route: 042
     Dates: start: 20060102
  4. SOLCOSERYL [Concomitant]
     Route: 042
     Dates: start: 20060102
  5. MEVALOTIN [Concomitant]
     Dosage: 10 MG, TID
     Route: 048
     Dates: start: 20051229
  6. ALFAROL [Concomitant]
     Dosage: 1 UG, TID
     Route: 048
     Dates: start: 20051229
  7. CALCIUM LACTATE [Concomitant]
     Dosage: 1 G, TID
     Route: 048
     Dates: start: 20051229
  8. NIVADIL [Concomitant]
     Dosage: 4 MG, TID
     Route: 048
     Dates: start: 20051229
  9. GASTROPYLORE [Concomitant]
     Dosage: 6 DF, TID
     Route: 048
     Dates: start: 20051229
  10. THYRADIN S [Concomitant]
     Dosage: 1.5 DF, TID
     Route: 048
     Dates: start: 20051229
  11. BLOPRESS [Concomitant]
     Dosage: 1 DF, TID
     Route: 048
     Dates: start: 20051229
  12. FERROUS SODIUM CITRATE [Concomitant]
     Dosage: 2 DF, TID
     Route: 048
     Dates: start: 20051229
  13. SEPAMIT [Concomitant]
     Dates: start: 20060104

REACTIONS (2)
  - MELAENA [None]
  - RECTAL ULCER [None]
